FAERS Safety Report 6006103-2 (Version None)
Quarter: 2008Q4

REPORT INFORMATION
  Report Type: 
  Country: None (occurrence: None)
  Receive Date: 20081215
  Receipt Date: 20081204
  Transmission Date: 20090506
  Serious: Yes (Hospitalization)
  Sender: FDA-Public Use
  Company Number: GXKR2008CH11740

PATIENT
  Age: 83 Year
  Sex: Female

DRUGS (6)
  1. METO ZEROK (NGX) (METOPROLOL) FILM-COATED TABLET [Suspect]
     Dosage: 100 MG/DAY, ORAL
     Route: 048
  2. LANTUS [Suspect]
     Indication: TYPE 1 DIABETES MELLITUS
     Dosage: SUBCUTANEOUS
     Route: 058
     Dates: end: 20080319
  3. INSULIN [Suspect]
     Indication: TYPE 1 DIABETES MELLITUS
     Dosage: SUBCUTANEOUS
     Route: 058
     Dates: end: 20080319
  4. ASPIRIN [Suspect]
     Dosage: 1 DF/DAY, ORAL
     Route: 048
  5. ENATEC (ENALAPRIL MALEATE) TABLET [Suspect]
     Dosage: 20 MG/DAY, ORAL
     Route: 048
  6. FELODIL (FELODIPINE) [Concomitant]

REACTIONS (4)
  - CONFUSIONAL STATE [None]
  - HYPOGLYCAEMIA [None]
  - MEDICATION ERROR [None]
  - VERTIGO [None]
